FAERS Safety Report 12068966 (Version 1)
Quarter: 2016Q1

REPORT INFORMATION
  Report Type: Spontaneous
  Country: US (occurrence: US)
  Receive Date: 20160211
  Receipt Date: 20160211
  Transmission Date: 20160526
  Serious: Yes (Other)
  Sender: FDA-Public Use
  Company Number: US-CIPLA LTD.-2015US02522

PATIENT

DRUGS (2)
  1. ALBUTEROL SULFATE/IPRATROPIUM BROMIDE [Suspect]
     Active Substance: ALBUTEROL SULFATE\IPRATROPIUM BROMIDE
     Dosage: 1 DF, QD
     Route: 055
     Dates: start: 201502
  2. ALBUTEROL SULFATE/IPRATROPIUM BROMIDE [Suspect]
     Active Substance: ALBUTEROL SULFATE\IPRATROPIUM BROMIDE
     Dosage: 1 DF, TID
     Route: 055
     Dates: start: 201502

REACTIONS (2)
  - Dyspnoea [Unknown]
  - Wheezing [Unknown]
